FAERS Safety Report 19052867 (Version 1)
Quarter: 2021Q1

REPORT INFORMATION
  Report Type: Spontaneous
  Country: US (occurrence: US)
  Receive Date: 20210324
  Receipt Date: 20210324
  Transmission Date: 20210420
  Serious: No
  Sender: FDA-Public Use
  Company Number: US-TARO-2020TAR01573

PATIENT

DRUGS (3)
  1. HYDROXYZINE [Concomitant]
     Active Substance: HYDROXYZINE HYDROCHLORIDE
     Indication: PRODUCT USED FOR UNKNOWN INDICATION
     Dosage: 1 CAPSULES BID AND 2 CAPSULES AT BEDTIME
     Route: 065
  2. LAMOTRIGINE TABLETS 100 MG [Suspect]
     Active Substance: LAMOTRIGINE
     Indication: SEIZURE
     Dosage: 100 MG, QD
     Route: 048
     Dates: start: 2018
  3. TRILEPTA [Concomitant]
     Indication: PRODUCT USED FOR UNKNOWN INDICATION
     Dosage: 300 MILLIGRAM, BID
     Route: 065

REACTIONS (1)
  - Weight increased [Not Recovered/Not Resolved]

NARRATIVE: CASE EVENT DATE: 2018
